FAERS Safety Report 17806492 (Version 1)
Quarter: 2020Q2

REPORT INFORMATION
  Report Type: Spontaneous
  Country: US (occurrence: US)
  Receive Date: 20200519
  Receipt Date: 20200519
  Transmission Date: 20200714
  Serious: Yes (Hospitalization)
  Sender: FDA-Public Use
  Company Number: None

PATIENT
  Age: 89 Year
  Sex: Male

DRUGS (2)
  1. IPRATROPIUM -ALBUTERIL 0.5 _3MG [Suspect]
     Active Substance: ALBUTEROL\IPRATROPIUM BROMIDE
     Indication: ASTHMA
     Dates: start: 20200401
  2. BUDESONIDE 0.5MG/2ML [Suspect]
     Active Substance: BUDESONIDE
     Indication: ASTHMA
     Dates: start: 20200401

REACTIONS (2)
  - Constipation [None]
  - Hypertension [None]

NARRATIVE: CASE EVENT DATE: 202005
